FAERS Safety Report 19358584 (Version 3)
Quarter: 2023Q2

REPORT INFORMATION
  Report Type: Spontaneous
  Country: RS (occurrence: RS)
  Receive Date: 20210602
  Receipt Date: 20230606
  Transmission Date: 20230722
  Serious: Yes (Death, Life-Threatening, Other)
  Sender: FDA-Public Use
  Company Number: RS-JNJFOC-20210551141

PATIENT

DRUGS (1)
  1. IMBRUVICA [Suspect]
     Active Substance: IBRUTINIB
     Indication: Chronic lymphocytic leukaemia
     Route: 048

REACTIONS (16)
  - COVID-19 [Fatal]
  - Neutropenia [Fatal]
  - Anaemia [Fatal]
  - Infection [Fatal]
  - Pneumonia [Fatal]
  - Otitis media [Fatal]
  - Haemorrhage [Fatal]
  - Thrombocytopenia [Fatal]
  - Fatigue [Unknown]
  - Diarrhoea [Unknown]
  - Arthralgia [Unknown]
  - Hypertension [Fatal]
  - Chronic kidney disease [Fatal]
  - Cardiac failure [Fatal]
  - Myocardial infarction [Fatal]
  - Chronic lymphocytic leukaemia [Fatal]
